FAERS Safety Report 17035405 (Version 1)
Quarter: 2019Q4

REPORT INFORMATION
  Report Type: Report from Study
  Country: CA (occurrence: CA)
  Receive Date: 20191115
  Receipt Date: 20191115
  Transmission Date: 20200122
  Serious: Yes (Hospitalization, Other)
  Sender: FDA-Public Use
  Company Number: CA-AMGEN-CANCT2019140264

PATIENT
  Age: 34 Year
  Sex: Female

DRUGS (1)
  1. AIMOVIG [Suspect]
     Active Substance: ERENUMAB-AOOE
     Indication: MIGRAINE
     Dosage: UNK
     Route: 065
     Dates: start: 20190410

REACTIONS (8)
  - Neoplasm malignant [Unknown]
  - Haemorrhage [Recovering/Resolving]
  - Nasopharyngitis [Unknown]
  - Influenza [Unknown]
  - Constipation [Unknown]
  - Malaise [Not Recovered/Not Resolved]
  - Vertigo [Unknown]
  - Oropharyngeal pain [Unknown]

NARRATIVE: CASE EVENT DATE: 20190813
